FAERS Safety Report 15430032 (Version 2)
Quarter: 2023Q2

REPORT INFORMATION
  Report Type: Spontaneous
  Country: US (occurrence: None)
  Receive Date: 20180926
  Receipt Date: 20230509
  Transmission Date: 20230721
  Serious: No
  Sender: FDA-Public Use
  Company Number: US-NAVINTA LLC-000063

PATIENT

DRUGS (3)
  1. SODIUM PHENYLACETATE AND SODIUM BENZOATE [Suspect]
     Active Substance: SODIUM BENZOATE\SODIUM PHENYLACETATE
     Indication: Hyperammonaemia
     Dosage: LOADING DOSE OVER 2HRS, CONTINUOUS INFUSION 24HRS
     Route: 042
     Dates: start: 20180811, end: 20180814
  2. DEXTROSE [Suspect]
     Active Substance: DEXTROSE\DEXTROSE MONOHYDRATE
     Indication: Product used for unknown indication
     Dosage: DILUTED WITH STERILE 10% DEXTROSE INJECTION
     Dates: start: 20180811, end: 20180814
  3. ARGININE [Concomitant]
     Active Substance: ARGININE
     Indication: Product used for unknown indication

REACTIONS (1)
  - Hyperglycaemia [Recovered/Resolved]

NARRATIVE: CASE EVENT DATE: 20180811
